FAERS Safety Report 17557075 (Version 1)
Quarter: 2020Q1

REPORT INFORMATION
  Report Type: Report from Study
  Country: US (occurrence: US)
  Receive Date: 20200318
  Receipt Date: 20200318
  Transmission Date: 20200409
  Serious: Yes (Hospitalization)
  Sender: FDA-Public Use
  Company Number: US-ACTELION-A-NJ2020-203081

PATIENT
  Sex: Female

DRUGS (2)
  1. OPSUMIT [Suspect]
     Active Substance: MACITENTAN
     Indication: PRODUCT USED FOR UNKNOWN INDICATION
     Dosage: 10 MG
     Route: 048
  2. OXYGEN. [Concomitant]
     Active Substance: OXYGEN

REACTIONS (10)
  - Cardiac disorder [Unknown]
  - Fatigue [Unknown]
  - Feeling abnormal [Unknown]
  - Fluid retention [Unknown]
  - Diabetes mellitus [Unknown]
  - Respiratory arrest [Unknown]
  - Malaise [Unknown]
  - Somnolence [Unknown]
  - Anxiety [Unknown]
  - Lacrimation increased [Unknown]
